FAERS Safety Report 20526655 (Version 1)
Quarter: 2022Q1

REPORT INFORMATION
  Report Type: Spontaneous
  Country: CA (occurrence: CA)
  Receive Date: 20220228
  Receipt Date: 20220228
  Transmission Date: 20220423
  Serious: Yes (Death, Hospitalization, Congenital Anomaly, Other)
  Sender: FDA-Public Use
  Company Number: CA-LUPIN PHARMACEUTICALS INC.-2022-02483

PATIENT
  Weight: 1.415 kg

DRUGS (3)
  1. VALSARTAN [Suspect]
     Active Substance: VALSARTAN
     Indication: Hypertension
     Dosage: UNK
     Route: 064
  2. SPIRONOLACTONE [Suspect]
     Active Substance: SPIRONOLACTONE
     Indication: Hypertension
     Dosage: UNK
     Route: 064
  3. FUROSEMIDE [Suspect]
     Active Substance: FUROSEMIDE
     Indication: Hypertension
     Dosage: UNK
     Route: 064

REACTIONS (12)
  - Foetal disorder [Fatal]
  - Renal tubular disorder [Fatal]
  - Hypocalvaria [Fatal]
  - Skull malformation [Fatal]
  - Limb deformity [Fatal]
  - Bicuspid aortic valve [Fatal]
  - Renal vessel disorder [Fatal]
  - Kidney fibrosis [Fatal]
  - Renal disorder [Fatal]
  - Stillbirth [Fatal]
  - Low birth weight baby [Unknown]
  - Foetal exposure during pregnancy [Unknown]
